FAERS Safety Report 24789158 (Version 1)
Quarter: 2024Q4

REPORT INFORMATION
  Report Type: Spontaneous
  Country: CN (occurrence: CN)
  Receive Date: 20241230
  Receipt Date: 20241230
  Transmission Date: 20250115
  Serious: Yes (Hospitalization)
  Sender: ROCHE
  Company Number: CN-BoehringerIngelheim-2024-BI-070169

PATIENT
  Age: 55 Year
  Sex: Male
  Weight: 80 kg

DRUGS (1)
  1. ALTEPLASE [Suspect]
     Active Substance: ALTEPLASE
     Indication: Thrombolysis
     Route: 042
     Dates: start: 20241207, end: 20241207

REACTIONS (2)
  - Haemoptysis [Recovered/Resolved]
  - Tachycardia [Recovering/Resolving]

NARRATIVE: CASE EVENT DATE: 20241207
